FAERS Safety Report 9005313 (Version 1)
Quarter: 2013Q1

REPORT INFORMATION
  Report Type: Spontaneous
  Country: US (occurrence: US)
  Receive Date: 20130108
  Receipt Date: 20130108
  Transmission Date: 20140127
  Serious: Yes (Other)
  Sender: FDA-Public Use
  Company Number: US-GLAXOSMITHKLINE-A0994518A

PATIENT
  Sex: Female

DRUGS (2)
  1. POTIGA [Suspect]
     Indication: CONVULSION
     Dosage: 50MG PER DAY
     Route: 048
  2. TRILEPTAL [Concomitant]

REACTIONS (1)
  - Urinary retention [Unknown]
